FAERS Safety Report 21285347 (Version 1)
Quarter: 2022Q3

REPORT INFORMATION
  Report Type: Spontaneous
  Country: US (occurrence: None)
  Receive Date: 20220901
  Receipt Date: 20220901
  Transmission Date: 20221026
  Serious: No
  Sender: FDA-Public Use
  Company Number: None

PATIENT
  Age: 45 Year
  Sex: Female

DRUGS (1)
  1. CAPECITABINE [Suspect]
     Active Substance: CAPECITABINE
     Dosage: 2000MG BID ORAL?
     Route: 048
     Dates: start: 202201, end: 202208

REACTIONS (3)
  - Disease progression [None]
  - Pulmonary oedema [None]
  - Nausea [None]

NARRATIVE: CASE EVENT DATE: 20220819
